FAERS Safety Report 14510146 (Version 2)
Quarter: 2020Q1

REPORT INFORMATION
  Report Type: Spontaneous
  Country: US (occurrence: US)
  Receive Date: 20180209
  Receipt Date: 20200324
  Transmission Date: 20200409
  Serious: Yes (Death, Hospitalization)
  Sender: FDA-Public Use
  Company Number: US-BAYER-2017-217738

PATIENT
  Age: 69 Year
  Sex: Female

DRUGS (3)
  1. XARELTO [Suspect]
     Active Substance: RIVAROXABAN
     Dosage: 20 MG, UNK
     Route: 048
     Dates: start: 20161205, end: 20170126
  2. XARELTO [Suspect]
     Active Substance: RIVAROXABAN
     Indication: DEEP VEIN THROMBOSIS
     Dosage: 15 MG, BID
     Route: 048
     Dates: start: 20161027, end: 20161115
  3. BAYER LOW DOSE [Suspect]
     Active Substance: ASPIRIN
     Indication: PRODUCT USED FOR UNKNOWN INDICATION
     Dosage: 81 MG, QD
     Route: 048

REACTIONS (2)
  - Gastrointestinal vascular malformation haemorrhagic [Recovering/Resolving]
  - Gastrointestinal vascular malformation haemorrhagic [Recovering/Resolving]

NARRATIVE: CASE EVENT DATE: 201611
